FAERS Safety Report 7217647-X (Version None)
Quarter: 2011Q1

REPORT INFORMATION
  Report Type: 
  Country: None (occurrence: None)
  Receive Date: 20110110
  Receipt Date: 20101227
  Transmission Date: 20110831
  Serious: Yes (Death)
  Sender: FDA-Public Use
  Company Number: JP-SANOFI-AVENTIS-F01200801660

PATIENT
  Age: 71 Year
  Sex: Male
  Weight: 68 kg

DRUGS (3)
  1. AMLODIPINE [Concomitant]
     Indication: HYPERTENSION
     Route: 048
     Dates: start: 20070829, end: 20080110
  2. ROSUVASTATIN [Concomitant]
  3. PLAVIX [Suspect]
     Indication: LACUNAR INFARCTION
     Dosage: UNIT DOSE: 75 MG
     Route: 048
     Dates: start: 20070829, end: 20080110

REACTIONS (1)
  - DEATH [None]
